FAERS Safety Report 8838877 (Version 2)
Quarter: 2013Q2

REPORT INFORMATION
  Report Type: Spontaneous
  Country: IE (occurrence: IE)
  Receive Date: 20121015
  Receipt Date: 20130404
  Transmission Date: 20140414
  Serious: Yes (Other)
  Sender: FDA-Public Use
  Company Number: IE-US-EMD SERONO, INC.-7166743

PATIENT
  Age: 51 Year
  Sex: Male

DRUGS (4)
  1. REBIF [Suspect]
     Indication: RELAPSING-REMITTING MULTIPLE SCLEROSIS
     Route: 058
     Dates: start: 20090309
  2. ASPRIN (ASPIRIN) [Concomitant]
     Indication: HYPERTENSION
     Route: 048
     Dates: start: 2011
  3. COVERSAL (COVERSYL) [Concomitant]
     Indication: HYPERTENSION
     Route: 048
     Dates: start: 2011
  4. CRESTOR [Concomitant]
     Indication: HYPERCHOLESTEROLAEMIA
     Route: 048
     Dates: start: 2008

REACTIONS (1)
  - Optic neuritis [Recovered/Resolved]
